FAERS Safety Report 8081012-6 (Version None)
Quarter: 2012Q1

REPORT INFORMATION
  Report Type: 
  Country: None (occurrence: None)
  Receive Date: 20120130
  Receipt Date: 20120119
  Transmission Date: 20120608
  Serious: Yes (Hospitalization, Other)
  Sender: FDA-Public Use
  Company Number: PHHY2012AR005076

PATIENT
  Sex: Male

DRUGS (4)
  1. ACYCLOVIR [Concomitant]
  2. EXELON [Suspect]
     Indication: DEMENTIA ALZHEIMER'S TYPE
     Dosage: UNK
     Route: 062
     Dates: start: 20040101
  3. MEMANTINE [Concomitant]
  4. VITAMINS NOS [Concomitant]

REACTIONS (5)
  - LEUKAEMIA [None]
  - MYCOSIS FUNGOIDES [None]
  - RENAL FAILURE [None]
  - COGNITIVE DISORDER [None]
  - MYCOSIS FUNGOIDES STAGE IV [None]
